FAERS Safety Report 4605206-4 (Version None)
Quarter: 2005Q1

REPORT INFORMATION
  Report Type: 
  Country: None (occurrence: None)
  Receive Date: 20050214
  Receipt Date: 20041108
  Transmission Date: 20050727
  Serious: No
  Sender: FDA-Public Use
  Company Number: USA041183444

PATIENT
  Sex: Male

DRUGS (6)
  1. CIALIS [Suspect]
     Dosage: 20 MG/D
  2. LISINOPRIL (LISINOOPRIL) [Concomitant]
  3. HYDROCHLOROTHIAZIDE [Concomitant]
  4. TOPROL XL (METROPROLOL SUCCINATE) [Concomitant]
  5. FLOMAX [Concomitant]
  6. ZOCOR (SIMVASTATIN RATIOPHARM) [Concomitant]

REACTIONS (4)
  - ASTHENIA [None]
  - BLOOD PRESSURE DECREASED [None]
  - CONFUSIONAL STATE [None]
  - DIZZINESS [None]
